FAERS Safety Report 6618986-3 (Version None)
Quarter: 2010Q1

REPORT INFORMATION
  Report Type: 
  Country: None (occurrence: None)
  Receive Date: 20100308
  Receipt Date: 20100222
  Transmission Date: 20100710
  Serious: Yes (Hospitalization, Other)
  Sender: FDA-Public Use
  Company Number: PHEH2008US02320

PATIENT
  Sex: Female

DRUGS (66)
  1. ZOMETA [Suspect]
     Dosage: UNK
     Dates: end: 20040730
  2. METHADONE HYDROCHLORIDE [Concomitant]
  3. ROCEPHIN [Concomitant]
  4. PROZAC [Concomitant]
     Dosage: 30 MG
  5. MEDROL [Concomitant]
  6. DYAZIDE [Concomitant]
  7. TAMOXIFEN CITRATE [Concomitant]
  8. GABITRIL [Concomitant]
  9. OXYCONTIN [Concomitant]
  10. FOLIC ACID [Concomitant]
  11. PREDNISONE [Concomitant]
  12. DURAGESIC-100 [Concomitant]
  13. HYDROMORPHONE HCL [Concomitant]
  14. NEXIUM [Concomitant]
  15. PLETAL [Concomitant]
     Dosage: UNK
  16. NEURONTIN [Concomitant]
     Dosage: 300 MG / 2 X DAILY
  17. LAMICTAL [Concomitant]
     Dosage: 100 MG / 2 X DAILY
  18. CYMBALTA [Concomitant]
     Dosage: UNK
  19. DITROPAN [Concomitant]
     Dosage: 15 MG, QD
  20. BOTOX [Concomitant]
     Dosage: UNK
     Route: 043
     Dates: start: 20090407
  21. URECHOLINE [Concomitant]
     Dosage: UNK
  22. KADIAN ^KNOLL^ [Concomitant]
  23. DITROPAN [Concomitant]
  24. PENICILLIN ^GRUNENTHAL^ [Concomitant]
  25. CIPROFLOXACIN [Concomitant]
  26. AZITHROMYC [Concomitant]
  27. METRONIDAZOLE [Concomitant]
  28. ZETIA [Concomitant]
  29. TRAMADOL HCL [Concomitant]
  30. NAPROXEN [Concomitant]
  31. PREVIDENT [Concomitant]
  32. IPRATROPIUM [Concomitant]
  33. CEFADROXIL [Concomitant]
  34. NEOMYCIN [Concomitant]
  35. GABAPENTIN [Concomitant]
  36. TOBREX [Concomitant]
  37. CILOSTAZOL [Concomitant]
  38. NITROFURANTOIN [Concomitant]
  39. PLAVIX [Concomitant]
  40. DRONABINOL [Concomitant]
  41. ELAVIL [Concomitant]
  42. DEXAMETHASONE [Concomitant]
     Dosage: 2 MG IV
  43. ACTIQ [Concomitant]
     Dosage: UNK
  44. IMMUNE GLOBULIN (HUMAN) [Concomitant]
     Dosage: UNK
     Dates: end: 20040101
  45. CLINDAMYCIN [Concomitant]
     Dosage: 300 MG / 3 X DAILY
     Dates: start: 20050823
  46. CEFTIN [Concomitant]
     Dosage: UNK
     Dates: end: 20050823
  47. PENICILLIN ^GRUNENTHAL^ [Concomitant]
     Dosage: UNK
  48. FLAGYL [Concomitant]
     Dosage: UNK
  49. ATROVENT [Concomitant]
     Dosage: UNK / BID
  50. FACTIVE [Concomitant]
     Dosage: UNK
  51. DETROL [Concomitant]
     Dosage: UNK
  52. KADIAN ^KNOLL^ [Concomitant]
     Dosage: UNK
  53. AVINZA [Concomitant]
     Dosage: UNK
  54. AVINZA [Concomitant]
     Dosage: 20 MG IN A.M/ 40 MG IN P.M.
     Dates: start: 20050117
  55. PEN-VEE K [Concomitant]
  56. ZOSYN [Concomitant]
  57. FUROSEMIDE [Concomitant]
  58. PANTOPRAZOLE [Concomitant]
  59. VENOFER [Concomitant]
  60. AMOXICILLIN SODIUM W/CLAVULANATE POTASSIUM [Concomitant]
  61. SODIUM CHLORIDE [Concomitant]
  62. ENOXAPARIN SODIUM [Concomitant]
  63. LOPRESSOR [Concomitant]
  64. PERCOCET [Concomitant]
  65. POLYGAM S/D [Concomitant]
  66. LABETALOL HCL [Concomitant]

REACTIONS (78)
  - ABSCESS DRAINAGE [None]
  - ABSCESS ORAL [None]
  - ANAEMIA [None]
  - ARTERIAL BYPASS OPERATION [None]
  - ARTERIOSCLEROSIS [None]
  - BLADDER PROLAPSE [None]
  - BONE DISORDER [None]
  - BONE FISTULA [None]
  - CARDIAC FAILURE CONGESTIVE [None]
  - CAROTID ARTERY STENOSIS [None]
  - CATHETERISATION VENOUS [None]
  - CELLULITIS [None]
  - CEREBRAL ATROPHY [None]
  - CHOLECYSTECTOMY [None]
  - CHRONIC INFLAMMATORY DEMYELINATING POLYRADICULONEUROPATHY [None]
  - COLOSTOMY [None]
  - CONTUSION [None]
  - DEAFNESS [None]
  - DEBRIDEMENT [None]
  - DENTAL IMPLANTATION [None]
  - DEPRESSION [None]
  - DEVICE FAILURE [None]
  - DIARRHOEA [None]
  - DYSAESTHESIA [None]
  - ESCHERICHIA INFECTION [None]
  - ETHMOID SINUS SURGERY [None]
  - EYE DISORDER [None]
  - FAECAL INCONTINENCE [None]
  - FALL [None]
  - FEMORAL ARTERY OCCLUSION [None]
  - GASTROOESOPHAGEAL REFLUX DISEASE [None]
  - GENERAL PHYSICAL CONDITION ABNORMAL [None]
  - GOITRE [None]
  - HAEMATOMA [None]
  - HALLUCINATION [None]
  - HEADACHE [None]
  - HYPERTONIC BLADDER [None]
  - IMPAIRED HEALING [None]
  - INCONTINENCE [None]
  - INFECTION [None]
  - INTERMITTENT CLAUDICATION [None]
  - LETHARGY [None]
  - MASS [None]
  - MAXILLOFACIAL OPERATION [None]
  - MEMORY IMPAIRMENT [None]
  - MENINGIOMA [None]
  - MENTAL STATUS CHANGES [None]
  - METASTASES TO BONE [None]
  - METASTASES TO LUNG [None]
  - METASTATIC NEOPLASM [None]
  - MUSCULAR WEAKNESS [None]
  - MYALGIA [None]
  - NEUROPATHY PERIPHERAL [None]
  - OSTEOARTHRITIS [None]
  - OSTEOMYELITIS [None]
  - OSTEONECROSIS [None]
  - OSTEOPENIA [None]
  - PAIN [None]
  - PELVIC ABSCESS [None]
  - PELVIC PAIN [None]
  - PERIPHERAL ISCHAEMIA [None]
  - PLASMAPHERESIS [None]
  - PNEUMONIA [None]
  - POSTNASAL DRIP [None]
  - PROLAPSE REPAIR [None]
  - RECTAL PROLAPSE [None]
  - SEPSIS [None]
  - SINUS ANTROSTOMY [None]
  - SINUSITIS [None]
  - SKIN LACERATION [None]
  - SWELLING [None]
  - SWELLING FACE [None]
  - TOOTH EXTRACTION [None]
  - URINARY TRACT INFECTION [None]
  - UTEROVAGINAL PROLAPSE [None]
  - WEIGHT DECREASED [None]
  - WOUND DECOMPOSITION [None]
  - WOUND SECRETION [None]
